FAERS Safety Report 17564908 (Version 1)
Quarter: 2020Q1

REPORT INFORMATION
  Report Type: Spontaneous
  Country: GB (occurrence: GB)
  Receive Date: 20200320
  Receipt Date: 20200320
  Transmission Date: 20200409
  Serious: Yes (Life-Threatening, Hospitalization)
  Sender: FDA-Public Use
  Company Number: GB-ASTRAZENECA-2020SE38079

PATIENT
  Age: 60 Year

DRUGS (9)
  1. RAMIPRIL. [Concomitant]
     Active Substance: RAMIPRIL
  2. DAPAGLIFLOZIN. [Suspect]
     Active Substance: DAPAGLIFLOZIN
     Route: 048
  3. METFORMIN [Concomitant]
     Active Substance: METFORMIN HYDROCHLORIDE
  4. CODEINE [Concomitant]
     Active Substance: CODEINE
     Dosage: 1-2 UP TO FOUR TIMES PER DAY
  5. SIMVASTATIN. [Concomitant]
     Active Substance: SIMVASTATIN
  6. LANSOPRAZOLE. [Concomitant]
     Active Substance: LANSOPRAZOLE
  7. NOVORAPID [Concomitant]
     Active Substance: INSULIN ASPART
     Dosage: 20 UNITS AM, 20 UNITS LUNCH, 26 UNITS TEATIME
  8. INSULIN DETEMIR [Concomitant]
     Active Substance: INSULIN DETEMIR
  9. BIMATOPROST. [Concomitant]
     Active Substance: BIMATOPROST

REACTIONS (3)
  - Vomiting [Recovered/Resolved]
  - Diarrhoea [Recovered/Resolved]
  - Diabetic ketoacidosis [Recovered/Resolved]
